FAERS Safety Report 19200243 (Version 1)
Quarter: 2021Q2

REPORT INFORMATION
  Report Type: Spontaneous
  Country: US (occurrence: US)
  Receive Date: 20210430
  Receipt Date: 20210430
  Transmission Date: 20210717
  Serious: No
  Sender: FDA-Public Use
  Company Number: US-009507513-2104USA000123

PATIENT
  Age: 14 Month
  Sex: Female

DRUGS (10)
  1. ROCURONIUM BROMIDE. [Concomitant]
     Active Substance: ROCURONIUM BROMIDE
     Indication: GENERAL ANAESTHESIA
     Dosage: 0.4 MG/KG
     Route: 042
  2. REMIFENTANIL HYDROCHLORIDE. [Concomitant]
     Active Substance: REMIFENTANIL HYDROCHLORIDE
     Indication: ANALGESIC THERAPY
  3. BRIDION [Suspect]
     Active Substance: SUGAMMADEX
     Indication: NEUROMUSCULAR BLOCKADE REVERSAL
     Dosage: 4 MILLIGRAM/KILOGRAM
  4. ACETAMINOPHEN. [Concomitant]
     Active Substance: ACETAMINOPHEN
     Indication: ANALGESIC THERAPY
     Route: 042
  5. KETOROLAC TROMETHAMINE. [Concomitant]
     Active Substance: KETOROLAC TROMETHAMINE
     Indication: ANALGESIC THERAPY
     Route: 042
  6. ELECTROLYTES (UNSPECIFIED) (+) SODIUM LACTATE [Concomitant]
     Active Substance: ELECTROLYTES NOS\SODIUM LACTATE
     Indication: FLUID REPLACEMENT
  7. SEVOFLURANE. [Concomitant]
     Active Substance: SEVOFLURANE
     Indication: INDUCTION OF ANAESTHESIA
  8. PROPOFOL. [Concomitant]
     Active Substance: PROPOFOL
     Indication: MAINTENANCE OF ANAESTHESIA
     Dosage: 20 MILLIGRAM
     Route: 042
  9. DEXTROSE. [Concomitant]
     Active Substance: DEXTROSE
     Indication: FLUID REPLACEMENT
  10. REMIFENTANIL HYDROCHLORIDE. [Concomitant]
     Active Substance: REMIFENTANIL HYDROCHLORIDE
     Indication: NEUROMUSCULAR BLOCKADE

REACTIONS (1)
  - Off label use [Unknown]
